FAERS Safety Report 8488764-1 (Version None)
Quarter: 2012Q2

REPORT INFORMATION
  Report Type: 
  Country: None (occurrence: None)
  Receive Date: 20120626
  Receipt Date: 20120611
  Transmission Date: 20120825
  Serious: Yes (Disabling, Other)
  Sender: FDA-Public Use
  Company Number: 2011MA003058

PATIENT
  Sex: Male
  Weight: 72.5755 kg

DRUGS (3)
  1. METOCLOPRAMIDE [Suspect]
     Indication: GASTRIC DISORDER
     Dates: start: 20030503, end: 20101115
  2. METOCLOPRAMIDE [Suspect]
     Indication: NAUSEA
     Dates: start: 20030503, end: 20101115
  3. LEXAPRO [Concomitant]

REACTIONS (16)
  - TREMOR [None]
  - GASTROOESOPHAGEAL REFLUX DISEASE [None]
  - FAMILY STRESS [None]
  - NAUSEA [None]
  - TARDIVE DYSKINESIA [None]
  - EMOTIONAL DISORDER [None]
  - DYSPEPSIA [None]
  - AKATHISIA [None]
  - INJURY [None]
  - CEREBROVASCULAR ACCIDENT [None]
  - GASTRIC DISORDER [None]
  - EXTRAPYRAMIDAL DISORDER [None]
  - ECONOMIC PROBLEM [None]
  - DYSTONIA [None]
  - MOVEMENT DISORDER [None]
  - TIC [None]
